FAERS Safety Report 13673435 (Version 1)
Quarter: 2017Q2

REPORT INFORMATION
  Report Type: Spontaneous
  Country: GB (occurrence: GB)
  Receive Date: 20170621
  Receipt Date: 20170621
  Transmission Date: 20170830
  Serious: Yes (Other)
  Sender: FDA-Public Use
  Company Number: GB-DEXPHARM-20170895

PATIENT
  Age: 87 Year
  Sex: Female
  Weight: 68 kg

DRUGS (8)
  1. LANSOPRAZOLE. [Concomitant]
     Active Substance: LANSOPRAZOLE
     Dates: start: 20170530
  2. LAXIDO [Concomitant]
     Active Substance: POLYETHYLENE GLYCOL 3350\POTASSIUM CHLORIDE\SODIUM BICARBONATE\SODIUM CHLORIDE
     Dosage: USE AS DIRECTED.
     Dates: start: 20160620
  3. CARBIMAZOLE [Concomitant]
     Active Substance: CARBIMAZOLE
     Dosage: USE AS DIRECTED.
     Dates: start: 20160620
  4. ASPIRIN. [Concomitant]
     Active Substance: ASPIRIN
     Dates: start: 20160620
  5. CITALOPRAM [Concomitant]
     Active Substance: CITALOPRAM HYDROBROMIDE
     Dates: start: 20170524
  6. OMEPRAZOLE. [Suspect]
     Active Substance: OMEPRAZOLE
     Dates: start: 20170524
  7. ATENOLOL. [Concomitant]
     Active Substance: ATENOLOL
     Dosage: TAKE ONE MORNING AND ONE IN EVENING.
     Dates: start: 20160620
  8. PRAMIPEXOLE. [Concomitant]
     Active Substance: PRAMIPEXOLE
     Indication: RESTLESS LEGS SYNDROME
     Dosage: ONCE A DAY.
     Dates: start: 20160620

REACTIONS (2)
  - Hallucination, visual [Recovered/Resolved]
  - Tremor [Recovered/Resolved]

NARRATIVE: CASE EVENT DATE: 20170524
